FAERS Safety Report 4364180-9 (Version None)
Quarter: 2004Q2

REPORT INFORMATION
  Report Type: 
  Country: None (occurrence: None)
  Receive Date: 20040517
  Receipt Date: 20040301
  Transmission Date: 20050107
  Serious: No
  Sender: FDA-Public Use
  Company Number: S04-USA-01119-01

PATIENT
  Age: 86 Year
  Sex: Female

DRUGS (11)
  1. NAMENDA [Suspect]
     Indication: DEMENTIA ALZHEIMER'S TYPE
     Dosage: 10 MG BID PO
     Route: 048
     Dates: start: 20040204
  2. NAMENDA [Suspect]
     Indication: DEMENTIA ALZHEIMER'S TYPE
     Dosage: 5 MG QD PO
     Route: 048
     Dates: start: 20040114, end: 20040120
  3. NAMENDA [Suspect]
     Indication: DEMENTIA ALZHEIMER'S TYPE
     Dosage: 10 MG QD PO
     Route: 048
     Dates: start: 20040121, end: 20040127
  4. NAMENDA [Suspect]
     Indication: DEMENTIA ALZHEIMER'S TYPE
     Dosage: 15 MG QD PO
     Route: 048
     Dates: start: 20040128, end: 20040203
  5. ARICEPT [Concomitant]
  6. EFFEXOR [Concomitant]
  7. REMERON [Concomitant]
  8. LIPITOR [Concomitant]
  9. ADALAT [Concomitant]
  10. IMDUR [Concomitant]
  11. BETAPACE [Concomitant]

REACTIONS (1)
  - PANIC ATTACK [None]
